FAERS Safety Report 6918619-2 (Version None)
Quarter: 2010Q3

REPORT INFORMATION
  Report Type: 
  Country: None (occurrence: None)
  Receive Date: 20100811
  Receipt Date: 20100802
  Transmission Date: 20110219
  Serious: Yes (Hospitalization, Disabling)
  Sender: FDA-Public Use
  Company Number: DE-PFIZER INC-2010096384

PATIENT
  Age: 46 Year
  Sex: Female
  Weight: 83 kg

DRUGS (2)
  1. ZELDOX [Suspect]
     Indication: SCHIZOPHRENIA
     Dosage: 20 MG IN THE MORNING, 80 MG IN THE EVENING
     Route: 048
     Dates: start: 20091201
  2. CLOZAPINE [Suspect]
     Indication: SCHIZOPHRENIA
     Dosage: 25 MG IN THE MORNING, 50 MG IN THE EVENING
     Route: 048
     Dates: start: 20091201

REACTIONS (1)
  - TYPE 2 DIABETES MELLITUS [None]
